FAERS Safety Report 25460815 (Version 2)
Quarter: 2025Q4

REPORT INFORMATION
  Report Type: Report from Study
  Country: CA (occurrence: CA)
  Receive Date: 20250620
  Receipt Date: 20251223
  Transmission Date: 20260118
  Serious: Yes (Hospitalization)
  Sender: PFIZER
  Company Number: CA-PFIZER INC-202500081651

PATIENT
  Age: 19 Year
  Sex: Male

DRUGS (4)
  1. RUXIENCE [Suspect]
     Active Substance: RITUXIMAB-PVVR
     Indication: Glomerulonephritis
     Dosage: 1000 MG, EVERY 2 WEEKS FOR 2 DOSES
     Route: 042
     Dates: start: 20240228
  2. RUXIENCE [Suspect]
     Active Substance: RITUXIMAB-PVVR
     Dosage: 1000 MG, EVERY 2 WEEKS FOR 2 DOSES
     Route: 042
     Dates: start: 20240314
  3. RUXIENCE [Suspect]
     Active Substance: RITUXIMAB-PVVR
     Dosage: 1000 MG, EVERY 2 WEEKS FOR 2 DOSES
     Route: 042
     Dates: start: 202507
  4. HUMAN IMMUNOGLOBULIN G [Concomitant]
     Active Substance: HUMAN IMMUNOGLOBULIN G
     Dosage: 1 DF, EVERY WEDNESDAY

REACTIONS (5)
  - Condition aggravated [Unknown]
  - Proteinuria [Not Recovered/Not Resolved]
  - Disease recurrence [Not Recovered/Not Resolved]
  - Increased upper airway secretion [Recovered/Resolved]
  - Off label use [Unknown]

NARRATIVE: CASE EVENT DATE: 20240228
